FAERS Safety Report 7988079-1 (Version None)
Quarter: 2011Q4

REPORT INFORMATION
  Report Type: 
  Country: None (occurrence: None)
  Receive Date: 20111216
  Receipt Date: 20110713
  Transmission Date: 20120403
  Serious: Yes (Other)
  Sender: FDA-Public Use
  Company Number: US-BRISTOL-MYERS SQUIBB COMPANY-15797848

PATIENT
  Age: 58 Year
  Sex: Male

DRUGS (7)
  1. LEXAPRO [Suspect]
     Indication: DEPRESSION
  2. ABILIFY [Suspect]
     Indication: DEPRESSION
     Dosage: TAKEN AS CONMED PAST 3 YEARS
     Dates: start: 20110301
  3. REVATIO [Concomitant]
  4. QUINAPRIL [Concomitant]
  5. DOSTINEX [Concomitant]
     Indication: NEOPLASM
  6. DILTIAZEM HCL [Concomitant]
  7. RITALIN [Concomitant]

REACTIONS (7)
  - FOOD CRAVING [None]
  - INSOMNIA [None]
  - DEPRESSION [None]
  - DRUG INEFFECTIVE [None]
  - BLOOD GLUCOSE ABNORMAL [None]
  - FATIGUE [None]
  - WEIGHT INCREASED [None]
